FAERS Safety Report 8113834-7 (Version None)
Quarter: 2012Q1

REPORT INFORMATION
  Report Type: 
  Country: None (occurrence: None)
  Receive Date: 20120203
  Receipt Date: 20120126
  Transmission Date: 20120608
  Serious: Yes (Hospitalization, Other)
  Sender: FDA-Public Use
  Company Number: PHEH2006US15226

PATIENT
  Sex: Female

DRUGS (18)
  1. AREDIA [Suspect]
  2. DARVOCET-N 50 [Concomitant]
  3. HYDRODIURIL [Concomitant]
  4. DIOVAN [Concomitant]
  5. MAGNESIUM HYDROXIDE TAB [Concomitant]
  6. NITROGLYCERIN [Concomitant]
     Dosage: 0.4 MG, UNK
  7. NORCO [Concomitant]
  8. PERCOCET [Concomitant]
  9. ASPIRIN [Concomitant]
  10. NORVASC [Concomitant]
  11. COMPAZINE [Concomitant]
  12. LIPITOR [Concomitant]
  13. AVALIDE [Concomitant]
  14. IBUPROFEN [Concomitant]
  15. MULTI-VITAMIN [Concomitant]
  16. ZOMETA [Suspect]
  17. XANAX [Concomitant]
  18. PROTONIX [Concomitant]

REACTIONS (96)
  - INTERVERTEBRAL DISC PROTRUSION [None]
  - PERIODONTAL DISEASE [None]
  - OSTEOPENIA [None]
  - MORTON'S NEUROMA [None]
  - OSTEORADIONECROSIS [None]
  - BURNOUT SYNDROME [None]
  - ANXIETY [None]
  - BACK PAIN [None]
  - ACQUIRED OESOPHAGEAL WEB [None]
  - HIATUS HERNIA [None]
  - SYNCOPE [None]
  - SMALL INTESTINAL OBSTRUCTION [None]
  - OSTEOARTHRITIS [None]
  - ERYTHEMA [None]
  - OROPHARYNGEAL PAIN [None]
  - MUSCULOSKELETAL PAIN [None]
  - EJECTION FRACTION DECREASED [None]
  - AORTIC VALVE SCLEROSIS [None]
  - PLEURAL EFFUSION [None]
  - SINUSITIS [None]
  - SPINAL COLUMN STENOSIS [None]
  - KYPHOSIS [None]
  - FOOT DEFORMITY [None]
  - ONYCHOMYCOSIS [None]
  - HYPOTHYROIDISM [None]
  - CATHETERISATION CARDIAC [None]
  - WALKING AID USER [None]
  - GASTROINTESTINAL SOUNDS ABNORMAL [None]
  - GASTROOESOPHAGEAL REFLUX DISEASE [None]
  - LEFT VENTRICULAR DYSFUNCTION [None]
  - PRESBYOPIA [None]
  - RENAL FAILURE [None]
  - INGROWING NAIL [None]
  - GINGIVAL ERYTHEMA [None]
  - DYSPHAGIA [None]
  - PAIN [None]
  - CHEST PAIN [None]
  - PAIN IN EXTREMITY [None]
  - ABDOMINAL PAIN UPPER [None]
  - SPINAL OSTEOARTHRITIS [None]
  - DUODENITIS [None]
  - ARTHRALGIA [None]
  - ANKLE FRACTURE [None]
  - DYSPNOEA [None]
  - BONE NEOPLASM MALIGNANT [None]
  - FLUID RETENTION [None]
  - ABDOMINAL DISTENSION [None]
  - CAROTID ARTERY STENOSIS [None]
  - GOUTY ARTHRITIS [None]
  - ARTHROPATHY [None]
  - CARDIAC FAILURE CONGESTIVE [None]
  - COLON ADENOMA [None]
  - GINGIVAL SWELLING [None]
  - INSOMNIA [None]
  - GRANULOMA [None]
  - LUMBAR RADICULOPATHY [None]
  - JOINT SWELLING [None]
  - NECK PAIN [None]
  - OESOPHAGEAL HYPOMOTILITY [None]
  - MITRAL VALVE INCOMPETENCE [None]
  - INTESTINAL OBSTRUCTION [None]
  - ORAL DISCHARGE [None]
  - BONE LOSS [None]
  - CARDIAC MURMUR [None]
  - FEELINGS OF WORTHLESSNESS [None]
  - GENERAL PHYSICAL HEALTH DETERIORATION [None]
  - DECREASED INTEREST [None]
  - MYOCARDIAL INFARCTION [None]
  - LUMBAR SPINAL STENOSIS [None]
  - HYPOKALAEMIA [None]
  - PRESYNCOPE [None]
  - VOMITING [None]
  - NAUSEA [None]
  - ASTHENIA [None]
  - VENTRICULAR HYPOKINESIA [None]
  - MACULAR DEGENERATION [None]
  - GAIT DISTURBANCE [None]
  - URINARY INCONTINENCE [None]
  - OSTEONECROSIS OF JAW [None]
  - PARAESTHESIA [None]
  - THROAT IRRITATION [None]
  - DIVERTICULUM [None]
  - DIARRHOEA [None]
  - BURSITIS [None]
  - SWELLING [None]
  - VITREOUS FLOATERS [None]
  - TENDONITIS [None]
  - SPONDYLOLISTHESIS [None]
  - INTERVERTEBRAL DISC DEGENERATION [None]
  - HEPATIC STEATOSIS [None]
  - OEDEMA [None]
  - HYPOAESTHESIA [None]
  - ABDOMINAL PAIN [None]
  - DYSPHONIA [None]
  - TENOSYNOVITIS [None]
  - ATRIAL FIBRILLATION [None]
